FAERS Safety Report 9546811 (Version 1)
Quarter: 2013Q3

REPORT INFORMATION
  Report Type: Spontaneous
  Country: US (occurrence: US)
  Receive Date: 20130924
  Receipt Date: 20130924
  Transmission Date: 20140515
  Serious: No
  Sender: FDA-Public Use
  Company Number: US-009507513-1309USA003987

PATIENT
  Sex: 0

DRUGS (2)
  1. EPTIFIBATIDE [Suspect]
     Indication: THROMBOSIS IN DEVICE
  2. HEPARIN [Suspect]

REACTIONS (1)
  - Gastrointestinal haemorrhage [Unknown]
